FAERS Safety Report 17251974 (Version 2)
Quarter: 2020Q1

REPORT INFORMATION
  Report Type: Spontaneous
  Country: BR (occurrence: BR)
  Receive Date: 20200109
  Receipt Date: 20200121
  Transmission Date: 20200409
  Serious: Yes (Hospitalization)
  Sender: FDA-Public Use
  Company Number: BR-GLAXOSMITHKLINE-BR2019234594

PATIENT
  Age: 2 Year
  Sex: Female
  Weight: 12 kg

DRUGS (1)
  1. ZINNAT [Suspect]
     Active Substance: CEFUROXIME
     Indication: PNEUMONIA
     Dosage: 3.5 ML, BID (50ML)
     Route: 048

REACTIONS (10)
  - Feeding disorder [Recovered/Resolved]
  - Oral pain [Recovered/Resolved]
  - Product complaint [Unknown]
  - Dysgeusia [Recovered/Resolved]
  - Treatment noncompliance [Unknown]
  - Underdose [Unknown]
  - Vomiting [Recovered/Resolved]
  - Ear pain [Recovered/Resolved]
  - Condition aggravated [Recovered/Resolved]
  - Crying [Recovered/Resolved]
